FAERS Safety Report 5259715-8 (Version None)
Quarter: 2007Q1

REPORT INFORMATION
  Report Type: 
  Country: None (occurrence: None)
  Receive Date: 20070309
  Receipt Date: 20070301
  Transmission Date: 20070707
  Serious: Yes (Other)
  Sender: FDA-Public Use
  Company Number: US-ROCHE-485750

PATIENT
  Age: 18 Year
  Sex: Female

DRUGS (3)
  1. ACCUTANE [Suspect]
     Indication: DRUG USE FOR UNKNOWN INDICATION
     Route: 065
     Dates: start: 20051129, end: 20060123
  2. ACCUTANE [Suspect]
     Route: 065
     Dates: start: 20060124, end: 20060315
  3. ACCUTANE [Suspect]
     Route: 065
     Dates: start: 20060515, end: 20060615

REACTIONS (2)
  - NO ADVERSE EFFECT [None]
  - PREGNANCY [None]
